FAERS Safety Report 17496132 (Version 2)
Quarter: 2020Q1

REPORT INFORMATION
  Report Type: Spontaneous
  Country: US (occurrence: US)
  Receive Date: 20200303
  Receipt Date: 20200310
  Transmission Date: 20200409
  Serious: Yes (Other)
  Sender: FDA-Public Use
  Company Number: US-ALLERGAN-2009130US

PATIENT
  Sex: Female

DRUGS (1)
  1. ARMOUR THYROID [Suspect]
     Active Substance: THYROID, PORCINE
     Indication: HYPOTHYROIDISM
     Dosage: 180 MG, QD
     Route: 048

REACTIONS (10)
  - Headache [Unknown]
  - Dry skin [Unknown]
  - Bradyphrenia [Unknown]
  - Hypersensitivity [Unknown]
  - Asthenia [Unknown]
  - Product quality issue [Unknown]
  - Arthralgia [Unknown]
  - Drug ineffective [Unknown]
  - Insomnia [Unknown]
  - Alopecia [Unknown]
